FAERS Safety Report 10710263 (Version 1)
Quarter: 2015Q1

REPORT INFORMATION
  Report Type: Spontaneous
  Country: FR (occurrence: None)
  Receive Date: 20150112
  Receipt Date: 20150112
  Transmission Date: 20150721
  Serious: Yes (Hospitalization)
  Sender: FDA-Public Use
  Company Number: 2014FE03720

PATIENT
  Age: 42 Year
  Sex: Female

DRUGS (3)
  1. OVITRELLE [Suspect]
     Active Substance: CHORIOGONADOTROPIN ALFA
     Indication: OVARIAN HYPERSTIMULATION SYNDROME
     Dosage: 250 UG, ONCE/SINGLE, SUBCUTANEOUS
     Route: 058
     Dates: start: 20141004, end: 20141004
  2. ORGALUTRAN [Suspect]
     Active Substance: GANIRELIX ACETATE
     Indication: OVARIAN HYPERSTIMULATION SYNDROME
     Route: 058
     Dates: start: 20141002, end: 20141003
  3. MENOPUR [Suspect]
     Active Substance: FOLLICLE STIMULATING HORMONE BETA POLYPEPTIDE\LUTROPIN ALFA
     Indication: OVARIAN HYPERSTIMULATION SYNDROME
     Route: 058
     Dates: start: 20140927, end: 20141003

REACTIONS (2)
  - Ovarian hyperstimulation syndrome [None]
  - Chest pain [None]

NARRATIVE: CASE EVENT DATE: 20141011
